FAERS Safety Report 24876194 (Version 3)
Quarter: 2025Q1

REPORT INFORMATION
  Report Type: Other
  Country: RO (occurrence: RO)
  Receive Date: 20250123
  Receipt Date: 20250130
  Transmission Date: 20250409
  Serious: Yes (Hospitalization, Other)
  Sender: STRIDES
  Company Number: RO-SCD-014484

PATIENT
  Age: 49 Year
  Sex: Female

DRUGS (13)
  1. NAPROXEN [Suspect]
     Active Substance: NAPROXEN
     Indication: Pain
     Route: 065
  2. AMOXICILLIN [Suspect]
     Active Substance: AMOXICILLIN
     Indication: Pain
     Route: 065
  3. IBUPROFEN ARGININE [Suspect]
     Active Substance: IBUPROFEN ARGININE
     Indication: Abdominal pain lower
     Route: 065
  4. ACETAMINOPHEN [Suspect]
     Active Substance: ACETAMINOPHEN
     Indication: Pain
     Route: 065
  5. ACETAMINOPHEN [Suspect]
     Active Substance: ACETAMINOPHEN
     Indication: Abdominal pain lower
     Route: 065
  6. ACETAMINOPHEN [Suspect]
     Active Substance: ACETAMINOPHEN
     Indication: Cholangitis acute
  7. KETOPROFEN [Suspect]
     Active Substance: KETOPROFEN
     Indication: Abdominal pain lower
     Route: 066
  8. METAMIZOLE [Suspect]
     Active Substance: METAMIZOLE
     Indication: Abdominal pain lower
     Route: 065
  9. DICLOFENAC SODIUM [Suspect]
     Active Substance: DICLOFENAC SODIUM
     Indication: Abdominal pain lower
     Route: 065
  10. AMOXICILLIN\CLAVULANIC ACID [Suspect]
     Active Substance: AMOXICILLIN\CLAVULANIC ACID
     Indication: Abdominal pain lower
     Route: 065
  11. PANTOPRAZOLE [Suspect]
     Active Substance: PANTOPRAZOLE
     Indication: Cholangitis acute
     Route: 065
  12. DROTAVERINE [Suspect]
     Active Substance: DROTAVERINE
     Indication: Cholangitis acute
     Route: 065
  13. SODIUM CHLORIDE [Suspect]
     Active Substance: SODIUM CHLORIDE
     Indication: Cholangitis acute
     Route: 065

REACTIONS (12)
  - Cholestatic liver injury [Recovered/Resolved]
  - Back pain [Recovered/Resolved]
  - Drug-induced liver injury [Recovered/Resolved]
  - Abdominal pain lower [Recovered/Resolved]
  - Abdominal pain lower [Recovered/Resolved]
  - Psoas abscess [Recovered/Resolved]
  - Hepatocellular injury [Recovered/Resolved]
  - Cholelithiasis [Recovered/Resolved]
  - Jaundice [Recovered/Resolved]
  - Pyrexia [Recovered/Resolved]
  - Vomiting [Recovered/Resolved]
  - Ocular icterus [Recovered/Resolved]
